FAERS Safety Report 5942148-6 (Version None)
Quarter: 2008Q4

REPORT INFORMATION
  Report Type: 
  Country: None (occurrence: None)
  Receive Date: 20081105
  Receipt Date: 20081029
  Transmission Date: 20090506
  Serious: Yes (Hospitalization, Other)
  Sender: FDA-Public Use
  Company Number: FR-AVENTIS-200813846FR

PATIENT
  Age: 81 Year
  Sex: Male

DRUGS (1)
  1. ANANDRON [Suspect]
     Route: 048
     Dates: start: 20080401, end: 20080614

REACTIONS (4)
  - BACK PAIN [None]
  - DYSPNOEA [None]
  - HEPATITIS CHOLESTATIC [None]
  - LIVER INJURY [None]
